FAERS Safety Report 20824969 (Version 5)
Quarter: 2022Q4

REPORT INFORMATION
  Report Type: Spontaneous
  Country: US (occurrence: US)
  Receive Date: 20220513
  Receipt Date: 20221109
  Transmission Date: 20230112
  Serious: Yes (Hospitalization, Other)
  Sender: FDA-Public Use
  Company Number: US-SA-SAC20220512000513

PATIENT
  Age: 55 Year
  Sex: Female

DRUGS (2)
  1. KEVZARA [Suspect]
     Active Substance: SARILUMAB
     Indication: Rheumatoid arthritis
     Dosage: 200 MG, QOW
     Route: 058
     Dates: start: 202110
  2. KEVZARA [Suspect]
     Active Substance: SARILUMAB
     Dosage: 200MG/1.14ML QOW
     Route: 058
     Dates: start: 202203

REACTIONS (7)
  - Rheumatoid arthritis [Not Recovered/Not Resolved]
  - Dyspnoea [Unknown]
  - Hypertension [Unknown]
  - COVID-19 [Unknown]
  - Oedema [Unknown]
  - Pain in extremity [Unknown]
  - Infection [Unknown]

NARRATIVE: CASE EVENT DATE: 20220101
